FAERS Safety Report 24122796 (Version 1)
Quarter: 2024Q3

REPORT INFORMATION
  Report Type: Spontaneous
  Country: US (occurrence: US)
  Receive Date: 20240723
  Receipt Date: 20240723
  Transmission Date: 20241016
  Serious: No
  Sender: RANBAXY
  Company Number: US-SUN PHARMACEUTICAL INDUSTRIES LTD-2023R1-419069

PATIENT
  Sex: Female

DRUGS (4)
  1. RISEDRONATE SODIUM [Suspect]
     Active Substance: RISEDRONATE SODIUM
     Indication: Schizophrenia
     Route: 065
  2. DEPAKOTE [Concomitant]
     Active Substance: DIVALPROEX SODIUM
     Indication: Seizure
     Dosage: UNK, BID
     Route: 065
  3. KEPPRA [Concomitant]
     Active Substance: LEVETIRACETAM
     Indication: Product used for unknown indication
     Route: 065
  4. DEXAMETHASONE [Concomitant]
     Active Substance: DEXAMETHASONE
     Indication: Brain oedema
     Dosage: UNK, QD
     Route: 065

REACTIONS (19)
  - Treatment noncompliance [Unknown]
  - Oropharyngeal pain [Unknown]
  - Dry mouth [Unknown]
  - Increased appetite [Unknown]
  - Weight increased [Unknown]
  - Anxiety [Unknown]
  - Insomnia [Unknown]
  - Vision blurred [Unknown]
  - Back pain [Unknown]
  - Arthralgia [Unknown]
  - Confusional state [Unknown]
  - Dizziness [Unknown]
  - Gait disturbance [Unknown]
  - Visual impairment [Unknown]
  - Drooling [Unknown]
  - Hot flush [Unknown]
  - Restlessness [Unknown]
  - Insomnia [Unknown]
  - Feeling cold [Unknown]
